FAERS Safety Report 7415754-X (Version None)
Quarter: 2011Q2

REPORT INFORMATION
  Report Type: 
  Country: None (occurrence: None)
  Receive Date: 20110406
  Receipt Date: 20110325
  Transmission Date: 20111010
  Serious: Yes (Hospitalization, Other)
  Sender: FDA-Public Use
  Company Number: WAES 1008USA00507

PATIENT
  Age: 4 Year
  Sex: Female

DRUGS (9)
  1. VITAMINS (UNSPECIFIED) [Concomitant]
  2. DIDANOSINE [Concomitant]
  3. LAMIVUDINE [Concomitant]
  4. BACTRIM [Concomitant]
  5. ISENTRESS [Suspect]
     Indication: HIV INFECTION
     Dosage: 100 MG, BID, PO;
     Route: 048
     Dates: start: 20100714
  6. ABACAVIR SULFATE [Concomitant]
  7. FOLIC ACID [Concomitant]
  8. EFAVIRENZ [Suspect]
     Dosage: 250 MG/HS, PO; 200 MG, DAILY  PO
     Route: 048
     Dates: start: 20101124
  9. EFAVIRENZ [Suspect]
     Dosage: 250 MG/HS, PO; 200 MG, DAILY  PO
     Route: 048
     Dates: start: 20100714

REACTIONS (20)
  - MEASLES [None]
  - LYMPHADENOPATHY [None]
  - HEPATOMEGALY [None]
  - RUBELLA [None]
  - HEPATITIS [None]
  - DRUG ERUPTION [None]
  - RASH ERYTHEMATOUS [None]
  - COUGH [None]
  - ALANINE AMINOTRANSFERASE INCREASED [None]
  - LACTIC ACIDOSIS [None]
  - RASH MACULO-PAPULAR [None]
  - GAMMA-GLUTAMYLTRANSFERASE INCREASED [None]
  - ASPARTATE AMINOTRANSFERASE INCREASED [None]
  - BLOOD ALKALINE PHOSPHATASE INCREASED [None]
  - ADENOVIRUS INFECTION [None]
  - PULMONARY TUBERCULOSIS [None]
  - LOBAR PNEUMONIA [None]
  - PRURITUS [None]
  - SPLENOMEGALY [None]
  - WEIGHT DECREASED [None]
